FAERS Safety Report 24148845 (Version 3)
Quarter: 2024Q3

REPORT INFORMATION
  Report Type: Spontaneous
  Country: US (occurrence: US)
  Receive Date: 20240729
  Receipt Date: 20240909
  Transmission Date: 20241017
  Serious: No
  Sender: PFIZER
  Company Number: US-PFIZER INC-202400221573

PATIENT
  Age: 15 Year
  Sex: Male
  Weight: 44 kg

DRUGS (1)
  1. GENOTROPIN [Suspect]
     Active Substance: SOMATROPIN
     Dosage: 2.0 MG, DAILY

REACTIONS (5)
  - Injection site pain [Unknown]
  - Device delivery system issue [Unknown]
  - Wrong technique in device usage process [Unknown]
  - Product storage error [Unknown]
  - Poor quality product administered [Unknown]

NARRATIVE: CASE EVENT DATE: 20240101
